FAERS Safety Report 10972643 (Version 3)
Quarter: 2015Q2

REPORT INFORMATION
  Report Type: Other
  Country: GB (occurrence: GB)
  Receive Date: 20150331
  Receipt Date: 20150520
  Transmission Date: 20150821
  Serious: Yes (Death, Other)
  Sender: FDA-Public Use
  Company Number: GB-MYLANLABS-2015M1006655

PATIENT

DRUGS (7)
  1. QUETIAPINE [Suspect]
     Active Substance: QUETIAPINE
     Dosage: 500 MG, QD (500MG ONCE AT NIGHT PLUS 25-50MG THREE TIMES DAILY / AS NECESSARY   )
     Dates: start: 201502
  2. LORAZEPAM. [Concomitant]
     Active Substance: LORAZEPAM
     Indication: ANXIETY
     Dosage: UNK (0.5-1MG TWICE DAILY / AS NECESSARY FOR 3 DAYS)
     Dates: start: 20150204
  3. LAMOTRIGINE. [Suspect]
     Active Substance: LAMOTRIGINE
     Indication: BIPOLAR DISORDER
     Dosage: 25 MG, QD
     Route: 048
     Dates: start: 20150106
  4. QUETIAPINE [Suspect]
     Active Substance: QUETIAPINE
     Indication: BIPOLAR DISORDER
     Dosage: UNK (25-50MG THREE TIMES DAILY / AS NECESSARY)
     Dates: start: 20150204
  5. QUETIAPINE [Suspect]
     Active Substance: QUETIAPINE
     Dosage: 400MG ONCE AT NIGHT PLUS 25-50MG THREE TIMES DAILY / AS NECESSARY
     Dates: start: 20150204, end: 201502
  6. LAMOTRIGINE. [Suspect]
     Active Substance: LAMOTRIGINE
     Dosage: 100 MG, QD (25MG OD FOR 2 WEEKS THEN 50MG OD FOR 2 WEEKS, THEN 100MG ONCE DAILY FROM 05 02 15)
     Route: 048
     Dates: start: 20150207, end: 20150209
  7. LAMOTRIGINE. [Suspect]
     Active Substance: LAMOTRIGINE
     Dosage: 50 MG, QD (TO COMMENCE FOLLOWING COMPLETION OF 25 MG LAMOTRIGINE DAILY   )
     Route: 048
     Dates: start: 201501

REACTIONS (6)
  - Cardiac arrest [Not Recovered/Not Resolved]
  - Depression [Not Recovered/Not Resolved]
  - Paranoia [Not Recovered/Not Resolved]
  - Persecutory delusion [Not Recovered/Not Resolved]
  - Overdose [Fatal]
  - Seizure [Not Recovered/Not Resolved]

NARRATIVE: CASE EVENT DATE: 20150204
